FAERS Safety Report 5864266-3 (Version None)
Quarter: 2008Q3

REPORT INFORMATION
  Report Type: 
  Country: None (occurrence: None)
  Receive Date: 20080829
  Receipt Date: 20080818
  Transmission Date: 20090109
  Serious: Yes (Life-Threatening, Hospitalization, Other)
  Sender: FDA-Public Use
  Company Number: US-ABBOTT-08P-163-0441130-01

PATIENT
  Sex: Male
  Weight: 78.2 kg

DRUGS (1)
  1. HUMIRA [Suspect]
     Indication: RHEUMATOID ARTHRITIS
     Route: 058
     Dates: start: 20031111, end: 20080129

REACTIONS (2)
  - B-CELL SMALL LYMPHOCYTIC LYMPHOMA [None]
  - RENAL CELL CARCINOMA [None]
